FAERS Safety Report 4990447-7 (Version None)
Quarter: 2006Q2

REPORT INFORMATION
  Report Type: 
  Country: None (occurrence: None)
  Receive Date: 20060503
  Receipt Date: 20060328
  Transmission Date: 20061013
  Serious: Yes (Other)
  Sender: FDA-Public Use
  Company Number: US-AMGEN-STX174194

PATIENT
  Sex: Female

DRUGS (7)
  1. ENBREL [Suspect]
     Indication: PSORIASIS
     Route: 058
     Dates: start: 20040823, end: 20060322
  2. DOVONEX [Concomitant]
     Indication: PSORIASIS
     Route: 061
  3. ULTRAVATE [Concomitant]
     Indication: PSORIASIS
     Route: 061
  4. EFFEXOR [Concomitant]
  5. WELLBUTRIN [Concomitant]
  6. ZANAFLEX [Concomitant]
  7. TALWIN [Concomitant]

REACTIONS (4)
  - CONDITION AGGRAVATED [None]
  - HYPERTENSION [None]
  - MULTIPLE SCLEROSIS [None]
  - OEDEMA PERIPHERAL [None]
